FAERS Safety Report 6535924-2 (Version None)
Quarter: 2010Q1

REPORT INFORMATION
  Report Type: 
  Country: None (occurrence: None)
  Receive Date: 20100113
  Receipt Date: 20100112
  Transmission Date: 20100710
  Serious: Yes (Other)
  Sender: FDA-Public Use
  Company Number: A0815054A

PATIENT
  Age: 64 Year
  Sex: Female

DRUGS (3)
  1. LAMOTRIGINE [Suspect]
     Indication: BIPOLAR DISORDER
     Dosage: 500MG PER DAY
     Route: 048
     Dates: start: 20030101
  2. NEURONTIN [Concomitant]
  3. KLONOPIN [Concomitant]

REACTIONS (2)
  - SYNCOPE [None]
  - TEMPERATURE INTOLERANCE [None]
